FAERS Safety Report 11719341 (Version 2)
Quarter: 2016Q1

REPORT INFORMATION
  Report Type: Spontaneous
  Country: BR (occurrence: BR)
  Receive Date: 20151110
  Receipt Date: 20160107
  Transmission Date: 20160525
  Serious: Yes (Life-Threatening, Hospitalization, Other)
  Sender: FDA-Public Use
  Company Number: BR-PFIZER INC-2015336689

PATIENT
  Age: 48 Year
  Sex: Female

DRUGS (11)
  1. FRONTAL SL [Suspect]
     Active Substance: ACETAMINOPHEN\PHENYLPROPANOLAMINE HYDROCHLORIDE\PHENYLTOLOXAMINE
     Indication: SYNCOPE
     Dosage: 10 MG, DAILY
     Route: 060
     Dates: start: 201507, end: 201511
  2. FRONTAL [Suspect]
     Active Substance: ALPRAZOLAM
     Indication: DIZZINESS
  3. PROMETHAZINE HYDROCHLORIDE. [Concomitant]
     Active Substance: PROMETHAZINE HYDROCHLORIDE
     Dosage: UNK
  4. FRONTAL SL [Suspect]
     Active Substance: ACETAMINOPHEN\PHENYLPROPANOLAMINE HYDROCHLORIDE\PHENYLTOLOXAMINE
     Indication: DIZZINESS
  5. OMEPRAZOLE. [Concomitant]
     Active Substance: OMEPRAZOLE
     Dosage: UNK
  6. PARACETAMOL [Concomitant]
     Active Substance: ACETAMINOPHEN
     Indication: FIBROMYALGIA
     Dosage: UNK
  7. PREGABALIN. [Concomitant]
     Active Substance: PREGABALIN
     Dosage: 1 DF, DAILY
  8. FRONTAL [Suspect]
     Active Substance: ALPRAZOLAM
     Indication: SYNCOPE
     Dosage: 10 MG, DAILY
     Route: 048
     Dates: start: 2014
  9. PREGABALIN. [Concomitant]
     Active Substance: PREGABALIN
     Dosage: 75 MG, 2X/DAY
  10. PREGABALIN. [Concomitant]
     Active Substance: PREGABALIN
     Dosage: 3 DF, DAILY
  11. DIAZEPAM. [Concomitant]
     Active Substance: DIAZEPAM
     Dosage: UNK

REACTIONS (10)
  - Presyncope [Unknown]
  - Agitation [Unknown]
  - Depression [Unknown]
  - Intentional product misuse [Unknown]
  - Loss of consciousness [Unknown]
  - Drug ineffective [Unknown]
  - Suicide attempt [Unknown]
  - Feeling drunk [Not Recovered/Not Resolved]
  - Fall [Unknown]
  - Memory impairment [Unknown]

NARRATIVE: CASE EVENT DATE: 20151030
